FAERS Safety Report 23688027 (Version 2)
Quarter: 2024Q2

REPORT INFORMATION
  Report Type: Spontaneous
  Country: US (occurrence: None)
  Receive Date: 20240329
  Receipt Date: 20240409
  Transmission Date: 20240716
  Serious: Yes (Death, Other)
  Sender: FDA-Public Use
  Company Number: 2024A076470

PATIENT
  Age: 58 Year
  Sex: Female

DRUGS (1)
  1. DURVALUMAB [Suspect]
     Active Substance: DURVALUMAB
     Indication: Neuroendocrine tumour of the lung
     Route: 042

REACTIONS (4)
  - Myocarditis [Fatal]
  - Acute hepatic failure [Fatal]
  - Acute kidney injury [Fatal]
  - Nervous system disorder [Fatal]
